FAERS Safety Report 15210341 (Version 1)
Quarter: 2018Q3

REPORT INFORMATION
  Report Type: Spontaneous
  Country: US (occurrence: US)
  Receive Date: 20180629
  Receipt Date: 20180629
  Transmission Date: 20181010
  Serious: Yes (Hospitalization)
  Sender: FDA-Public Use
  Company Number: None

PATIENT
  Age: 70 Year
  Sex: Female

DRUGS (4)
  1. ORENCIA [Suspect]
     Active Substance: ABATACEPT
     Indication: RHEUMATOID ARTHRITIS
     Route: 058
     Dates: start: 20160801, end: 20180501
  2. AMLODIPINE [Suspect]
     Active Substance: AMLODIPINE BESYLATE
  3. PLAQUENIL [Suspect]
     Active Substance: HYDROXYCHLOROQUINE SULFATE
     Indication: RHEUMATOID ARTHRITIS
  4. TRINTRLLIS [Concomitant]

REACTIONS (3)
  - Diarrhoea [None]
  - Decreased appetite [None]
  - Knee arthroplasty [None]

NARRATIVE: CASE EVENT DATE: 20180501
